FAERS Safety Report 9151356 (Version 1)
Quarter: 2013Q1

REPORT INFORMATION
  Report Type: Spontaneous
  Country: US (occurrence: US)
  Receive Date: 20130308
  Receipt Date: 20130308
  Transmission Date: 20140127
  Serious: No
  Sender: FDA-Public Use
  Company Number: US-GLAXOSMITHKLINE-A0978869A

PATIENT
  Age: 58 Year
  Sex: Female

DRUGS (3)
  1. NICORETTE [Suspect]
     Indication: EX-TOBACCO USER
     Dates: start: 20120518, end: 20120523
  2. GLYBURIDE [Concomitant]
  3. LOTREL [Concomitant]

REACTIONS (3)
  - Nausea [Recovered/Resolved]
  - Headache [Recovered/Resolved]
  - Drug interaction [Recovered/Resolved]
